FAERS Safety Report 4480836-1 (Version None)
Quarter: 2004Q4

REPORT INFORMATION
  Report Type: 
  Country: None (occurrence: None)
  Receive Date: 20041021
  Receipt Date: 20040817
  Transmission Date: 20050328
  Serious: Yes (Death, Hospitalization)
  Sender: FDA-Public Use
  Company Number: FR-ABBOTT-04P-056-0270971-00

PATIENT
  Age: 49 Year
  Sex: Male

DRUGS (4)
  1. FENOFIBRATE [Suspect]
     Indication: DRUG USE FOR UNKNOWN INDICATION
     Route: 048
     Dates: end: 20040705
  2. BACTRIM [Concomitant]
     Indication: DRUG USE FOR UNKNOWN INDICATION
     Dates: start: 20031206, end: 20040630
  3. NICARDIPINE HCL [Concomitant]
     Indication: DRUG USE FOR UNKNOWN INDICATION
     Dates: end: 20040705
  4. TACROLIMUS [Concomitant]
     Indication: DRUG USE FOR UNKNOWN INDICATION

REACTIONS (7)
  - ANAEMIA [None]
  - CARDIAC ARREST [None]
  - CYTOMEGALOVIRUS INFECTION [None]
  - LEUKOPENIA [None]
  - SEPTIC SHOCK [None]
  - THROMBOCYTOPENIA [None]
  - TOXIC EPIDERMAL NECROLYSIS [None]
